FAERS Safety Report 25098908 (Version 1)
Quarter: 2025Q1

REPORT INFORMATION
  Report Type: Spontaneous
  Country: US (occurrence: US)
  Receive Date: 20250320
  Receipt Date: 20250320
  Transmission Date: 20250408
  Serious: Yes (Other)
  Sender: SANOFI AVENTIS
  Company Number: US-SA-2025SA080902

PATIENT
  Age: 51 Year
  Sex: Female

DRUGS (7)
  1. DUPIXENT [Suspect]
     Active Substance: DUPILUMAB
     Indication: Chronic sinusitis
     Route: 058
     Dates: start: 20211210
  2. DUPIXENT [Suspect]
     Active Substance: DUPILUMAB
     Indication: Sinusitis
  3. FLUOROURACIL [Concomitant]
     Active Substance: FLUOROURACIL
  4. OXALIPLATIN [Concomitant]
     Active Substance: OXALIPLATIN
  5. MONTELUKAST [Concomitant]
     Active Substance: MONTELUKAST
  6. ALBUTEROL [Concomitant]
     Active Substance: ALBUTEROL
  7. FLUTICASONE [Concomitant]
     Active Substance: FLUTICASONE

REACTIONS (2)
  - Colon cancer [Unknown]
  - Drug effective for unapproved indication [Unknown]

NARRATIVE: CASE EVENT DATE: 20250101
